FAERS Safety Report 7752921-X (Version None)
Quarter: 2011Q3

REPORT INFORMATION
  Report Type: 
  Country: None (occurrence: None)
  Receive Date: 20110915
  Receipt Date: 20110909
  Transmission Date: 20111222
  Serious: Yes (Other)
  Sender: FDA-Public Use
  Company Number: US-SANOFI-AVENTIS-2011SA059782

PATIENT
  Age: 85 Year
  Sex: Male

DRUGS (1)
  1. MULTAQ [Suspect]
     Route: 048

REACTIONS (4)
  - SICK SINUS SYNDROME [None]
  - CARDIOMYOPATHY [None]
  - ATRIAL FIBRILLATION [None]
  - EJECTION FRACTION DECREASED [None]
